FAERS Safety Report 13185269 (Version 1)
Quarter: 2017Q1

REPORT INFORMATION
  Report Type: Spontaneous
  Country: US (occurrence: US)
  Receive Date: 20170203
  Receipt Date: 20170203
  Transmission Date: 20170428
  Serious: Yes (Other)
  Sender: FDA-Public Use
  Company Number: US-PFIZER INC-2017045956

PATIENT
  Sex: Male

DRUGS (1)
  1. SUTENT [Suspect]
     Active Substance: SUNITINIB MALATE
     Dosage: 50 MG, CYCLIC (4/2)

REACTIONS (16)
  - Nausea [Unknown]
  - Fatigue [Unknown]
  - Dehydration [Recovering/Resolving]
  - Abdominal distension [Recovering/Resolving]
  - Neuralgia [Unknown]
  - Memory impairment [Unknown]
  - Neoplasm progression [Unknown]
  - Somnolence [Unknown]
  - Impaired healing [Unknown]
  - Seroma [Recovered/Resolved]
  - Decreased appetite [Recovering/Resolving]
  - Feeling abnormal [Unknown]
  - Arterial injury [Unknown]
  - Diarrhoea [Unknown]
  - Hypersomnia [Unknown]
  - Lip blister [Unknown]

NARRATIVE: CASE EVENT DATE: 2016
